FAERS Safety Report 7983406-3 (Version None)
Quarter: 2011Q4

REPORT INFORMATION
  Report Type: 
  Country: None (occurrence: None)
  Receive Date: 20111215
  Receipt Date: 20111213
  Transmission Date: 20120403
  Serious: Yes (Hospitalization)
  Sender: FDA-Public Use
  Company Number: US-AMGEN-USACT2011056380

PATIENT
  Age: 62 Year
  Sex: Male

DRUGS (17)
  1. PEGFILGRASTIM [Suspect]
     Indication: COLORECTAL CANCER METASTATIC
     Dosage: 6 MG, UNK
     Route: 058
     Dates: start: 20110916, end: 20111025
  2. FRAGMIN [Concomitant]
  3. COLACE [Concomitant]
  4. ROCEPHIN [Concomitant]
  5. FLUOROURACIL [Concomitant]
     Dosage: 688 MG, Q3WK
     Route: 042
     Dates: start: 20110913, end: 20111025
  6. DURAGESIC-100 [Concomitant]
     Dosage: 15 MUG, UNK
  7. ATIVAN [Concomitant]
     Dosage: 1 MG, TID
  8. OXYCODONE HCL [Concomitant]
     Dosage: 6
  9. ZOFRAN [Concomitant]
  10. IRINOTECAN HCL [Concomitant]
     Dosage: 310 MG, Q3WK
     Route: 042
     Dates: start: 20110913, end: 20111025
  11. LISINOPRIL [Concomitant]
     Dosage: 10 MG, QD
  12. LEUCOVORIN CALCIUM [Concomitant]
     Dosage: 688 MG, Q3WK
     Route: 042
     Dates: start: 20110913, end: 20111025
  13. BEVACIZUMAB [Concomitant]
     Dosage: 330 MG, Q3WK
     Route: 042
     Dates: start: 20110913, end: 20111025
  14. MS CONTIN [Concomitant]
     Dosage: 30 MG, BID
  15. LOVENOX [Concomitant]
     Dosage: 1 MG/KG, Q12H
  16. PROTONIX [Concomitant]
  17. VANCOMYCIN [Concomitant]

REACTIONS (1)
  - MENTAL STATUS CHANGES [None]
